FAERS Safety Report 7771949-7 (Version None)
Quarter: 2011Q3

REPORT INFORMATION
  Report Type: 
  Country: None (occurrence: None)
  Receive Date: 20110922
  Receipt Date: 20100331
  Transmission Date: 20111222
  Serious: No
  Sender: FDA-Public Use
  Company Number: US-ASTRAZENECA-2010SE51057

PATIENT
  Sex: Female

DRUGS (4)
  1. CELEXA [Concomitant]
     Dates: start: 20030701
  2. VIOXX [Concomitant]
     Dates: end: 20030701
  3. KLONOPIN [Concomitant]
     Dosage: 2 MG IN DIVIDED DOSES
     Dates: start: 20030701
  4. SEROQUEL [Suspect]
     Dosage: 25 MG AND 200 MG IN DIVIDED DOSES
     Route: 048
     Dates: start: 20020107

REACTIONS (5)
  - OBESITY [None]
  - INTERVERTEBRAL DISC DEGENERATION [None]
  - ASTHMA [None]
  - ARTHRITIS [None]
  - CHRONIC OBSTRUCTIVE PULMONARY DISEASE [None]
